FAERS Safety Report 4500999-9 (Version None)
Quarter: 2004Q4

REPORT INFORMATION
  Report Type: 
  Country: None (occurrence: None)
  Receive Date: 20041115
  Receipt Date: 20040909
  Transmission Date: 20050328
  Serious: Yes (Other)
  Sender: FDA-Public Use
  Company Number: JP-GLAXOSMITHKLINE-B0345395A

PATIENT
  Age: 64 Year
  Sex: Male

DRUGS (11)
  1. PAXIL [Suspect]
     Indication: DEPRESSION
     Route: 048
     Dates: start: 20040812, end: 20040902
  2. HALCION [Concomitant]
     Indication: INSOMNIA
     Dosage: .25MG PER DAY
     Route: 048
     Dates: start: 20040803, end: 20040902
  3. OXYCONTIN [Concomitant]
     Indication: PAIN MANAGEMENT
     Dosage: 5MG TWICE PER DAY
     Route: 048
     Dates: start: 20040803, end: 20040902
  4. HARNAL [Concomitant]
     Indication: DYSURIA
     Dosage: .2MG PER DAY
     Route: 048
     Dates: start: 20040806, end: 20040902
  5. SENNARIDE [Concomitant]
     Indication: CONSTIPATION
     Dosage: 12MG PER DAY
     Route: 048
     Dates: start: 20040807, end: 20040902
  6. STOGAR [Concomitant]
     Indication: GASTRITIS
     Dosage: 10MG PER DAY
     Route: 048
     Dates: start: 20040820, end: 20040902
  7. SOLDEM 3A [Concomitant]
     Dosage: 500ML PER DAY
     Route: 042
     Dates: start: 20040730, end: 20040911
  8. NEOLAMIN [Concomitant]
     Dosage: 10ML PER DAY
     Route: 042
     Dates: start: 20040730, end: 20040911
  9. AMICALIQ [Concomitant]
     Dosage: 500ML PER DAY
     Route: 042
     Dates: start: 20040730, end: 20040911
  10. PRIMPERAN INJ [Concomitant]
     Indication: PROPHYLAXIS OF NAUSEA AND VOMITING
     Dosage: 10MG PER DAY
     Dates: start: 20040730, end: 20040911
  11. BUSCOPAN [Concomitant]
     Indication: PROPHYLAXIS OF NAUSEA AND VOMITING
     Dates: start: 20040730, end: 20040911

REACTIONS (3)
  - DEPRESSED LEVEL OF CONSCIOUSNESS [None]
  - MUSCLE RIGIDITY [None]
  - NEUROLEPTIC MALIGNANT SYNDROME [None]
